FAERS Safety Report 4803244-X (Version None)
Quarter: 2005Q4

REPORT INFORMATION
  Report Type: 
  Country: None (occurrence: None)
  Receive Date: 20051019
  Receipt Date: 20051004
  Transmission Date: 20060501
  Serious: Yes (Hospitalization)
  Sender: FDA-Public Use
  Company Number: CA-AMGEN-US152951

PATIENT
  Sex: Female

DRUGS (2)
  1. ENBREL [Suspect]
     Indication: RHEUMATOID ARTHRITIS
  2. CORTICOSTEROID NOS [Concomitant]

REACTIONS (2)
  - HISTIOCYTOSIS HAEMATOPHAGIC [None]
  - MALAISE [None]
